FAERS Safety Report 11635844 (Version 5)
Quarter: 2017Q1

REPORT INFORMATION
  Report Type: Spontaneous
  Country: US (occurrence: US)
  Receive Date: 20151016
  Receipt Date: 20170316
  Transmission Date: 20170428
  Serious: Yes (Other)
  Sender: FDA-Public Use
  Company Number: US-AMGEN-USASP2015105571

PATIENT
  Age: 10 Year
  Sex: Female
  Weight: 37.8 kg

DRUGS (25)
  1. NPLATE [Suspect]
     Active Substance: ROMIPLOSTIM
     Dosage: 240 MUG, QWK
     Route: 058
     Dates: start: 20150828
  2. NPLATE [Suspect]
     Active Substance: ROMIPLOSTIM
     Dosage: 250 MUG, QWK
     Route: 058
     Dates: start: 20150904
  3. NPLATE [Suspect]
     Active Substance: ROMIPLOSTIM
     Dosage: 375 MUG, QWK
     Route: 058
     Dates: start: 20160916
  4. NPLATE [Suspect]
     Active Substance: ROMIPLOSTIM
     Indication: IMMUNE THROMBOCYTOPENIC PURPURA
     Dosage: 30 MUG, QWK
     Route: 058
     Dates: start: 20150611
  5. NPLATE [Suspect]
     Active Substance: ROMIPLOSTIM
     Dosage: 350 MUG, QWK
     Route: 058
     Dates: start: 20160129
  6. RITUXIMAB [Concomitant]
     Active Substance: RITUXIMAB
     Dosage: 375 MG/M2, UNK
     Dates: start: 20151122
  7. XOPENEX HFA [Concomitant]
     Active Substance: LEVALBUTEROL TARTRATE
     Dosage: 45 MUG, EVERY 4 HOURS
     Route: 045
  8. NPLATE [Suspect]
     Active Substance: ROMIPLOSTIM
     Dosage: 60 MUG, QWK
     Route: 058
     Dates: start: 20150619
  9. NPLATE [Suspect]
     Active Substance: ROMIPLOSTIM
     Dosage: 90 MUG, QWK
     Route: 058
     Dates: start: 20150625
  10. NPLATE [Suspect]
     Active Substance: ROMIPLOSTIM
     Dosage: 110 MUG, QWK
     Route: 058
     Dates: start: 20150706
  11. NPLATE [Suspect]
     Active Substance: ROMIPLOSTIM
     Dosage: 150 MUG, QWK
     Route: 058
     Dates: start: 20150716
  12. NPLATE [Suspect]
     Active Substance: ROMIPLOSTIM
     Dosage: 290 MUG, QWK
     Route: 058
     Dates: start: 20150925
  13. NPLATE [Suspect]
     Active Substance: ROMIPLOSTIM
     Dosage: 325 MUG, QWK
     Route: 058
     Dates: start: 20160610
  14. NPLATE [Suspect]
     Active Substance: ROMIPLOSTIM
     Dosage: 300 MUG, QWK
     Route: 058
     Dates: start: 20160108
  15. NPLATE [Suspect]
     Active Substance: ROMIPLOSTIM
     Dosage: 325 MUG, QWK
     Route: 058
     Dates: start: 20160401
  16. NPLATE [Suspect]
     Active Substance: ROMIPLOSTIM
     Dosage: 290 MUG, QWK
     Route: 058
     Dates: start: 20160506
  17. NPLATE [Suspect]
     Active Substance: ROMIPLOSTIM
     Dosage: 350 MUG, QWK
     Route: 058
     Dates: start: 20160819
  18. WINRHO [Concomitant]
     Active Substance: HUMAN RHO(D) IMMUNE GLOBULIN
     Dosage: 250 UNITS/KG
     Dates: start: 20151025
  19. NPLATE [Suspect]
     Active Substance: ROMIPLOSTIM
     Dosage: 330 MUG, QWK
     Route: 058
     Dates: start: 20151231
  20. NPLATE [Suspect]
     Active Substance: ROMIPLOSTIM
     Dosage: 290 MUG, QWK
     Route: 058
     Dates: start: 20160527
  21. NPLATE [Suspect]
     Active Substance: ROMIPLOSTIM
     Dosage: 180 MUG, QWK
     Route: 058
     Dates: start: 20150724
  22. NPLATE [Suspect]
     Active Substance: ROMIPLOSTIM
     Dosage: 210 MUG, QWK
     Route: 058
     Dates: start: 20150729
  23. NPLATE [Suspect]
     Active Substance: ROMIPLOSTIM
     Dosage: 280 MUG, QWK
     Route: 058
     Dates: start: 20160603
  24. PROMACTA [Concomitant]
     Active Substance: ELTROMBOPAG OLAMINE
     Indication: IMMUNE THROMBOCYTOPENIC PURPURA
     Dosage: 25 MG, QD
     Route: 048
     Dates: start: 20161222
  25. NPLATE [Suspect]
     Active Substance: ROMIPLOSTIM
     Dosage: 325 MUG, QWK
     Route: 058
     Dates: start: 20160520

REACTIONS (10)
  - Therapeutic response changed [Unknown]
  - Pharyngitis streptococcal [Unknown]
  - Ecchymosis [Unknown]
  - Platelet count abnormal [Unknown]
  - Off label use [Unknown]
  - Petechiae [Unknown]
  - Injury [Unknown]
  - Drug effect decreased [Not Recovered/Not Resolved]
  - Weight decreased [Unknown]
  - Contusion [Unknown]

NARRATIVE: CASE EVENT DATE: 20150611
